FAERS Safety Report 4641581-2 (Version None)
Quarter: 2005Q2

REPORT INFORMATION
  Report Type: 
  Country: None (occurrence: None)
  Receive Date: 20050420
  Receipt Date: 20050404
  Transmission Date: 20051028
  Serious: Yes (Hospitalization, Other)
  Sender: FDA-Public Use
  Company Number: USA030844432

PATIENT
  Age: 87 Year
  Sex: Female
  Weight: 60 kg

DRUGS (8)
  1. FORTEO [Suspect]
     Indication: OSTEOPOROSIS
     Dates: start: 20030731, end: 20050316
  2. NORVASC [Concomitant]
  3. VITAMIN [Concomitant]
  4. HYDROCHLOROTHIAZIDE  W/ VALSARTAN [Concomitant]
  5. LIPITOR [Concomitant]
  6. LASIX [Concomitant]
  7. ACETYL SALICYLIC ACID USP BAT [Concomitant]
  8. PRILOSEC            (OMEPRAZOLE RATIOPHARM) [Concomitant]

REACTIONS (19)
  - ACUTE CORONARY SYNDROME [None]
  - ANGINA PECTORIS [None]
  - BILIARY DILATATION [None]
  - BLOOD ALKALINE PHOSPHATASE INCREASED [None]
  - CARDIOMYOPATHY [None]
  - CAROTID BRUIT [None]
  - CHEST DISCOMFORT [None]
  - CONTUSION [None]
  - DIZZINESS [None]
  - EAR DISCOMFORT [None]
  - FLUSHING [None]
  - HEPATIC NEOPLASM MALIGNANT [None]
  - INJECTION SITE HAEMORRHAGE [None]
  - JAUNDICE CHOLESTATIC [None]
  - MITRAL VALVE INCOMPETENCE [None]
  - PHARMACEUTICAL PRODUCT COMPLAINT [None]
  - RENAL CYST [None]
  - RENAL DISORDER [None]
  - RENAL HAEMORRHAGE [None]
